FAERS Safety Report 7965966-1 (Version None)
Quarter: 2011Q4

REPORT INFORMATION
  Report Type: 
  Country: None (occurrence: None)
  Receive Date: 20111208
  Receipt Date: 20111206
  Transmission Date: 20120403
  Serious: Yes (Hospitalization)
  Sender: FDA-Public Use
  Company Number: US-PFIZER INC-2011297568

PATIENT
  Sex: Female
  Weight: 81.633 kg

DRUGS (5)
  1. OXYCODONE HCL [Suspect]
     Dosage: 30 MG, TWO TABLETS EVERY FOUR HOURS
     Route: 048
  2. XANAX [Suspect]
     Indication: PANIC ATTACK
  3. ATENOLOL [Concomitant]
     Indication: HYPERTENSION
     Dosage: 40 MG, 2X/DAY
  4. METFORMIN [Concomitant]
     Indication: DIABETES MELLITUS
     Dosage: 500 MG, 2X/DAY
  5. XANAX [Suspect]
     Indication: MUSCLE SPASMS
     Dosage: 2 MG, EVERY FOUR HOURS
     Route: 048

REACTIONS (2)
  - PNEUMONIA [None]
  - DRUG SCREEN POSITIVE [None]
